FAERS Safety Report 5254075-0 (Version None)
Quarter: 2007Q1

REPORT INFORMATION
  Report Type: 
  Country: None (occurrence: None)
  Receive Date: 20070302
  Receipt Date: 20070223
  Transmission Date: 20070707
  Serious: Yes (Hospitalization)
  Sender: FDA-Public Use
  Company Number: FR-AVENTIS-200614333FR

PATIENT
  Age: 17 Year
  Sex: Female
  Weight: 60 kg

DRUGS (1)
  1. ARAVA [Suspect]
     Route: 048
     Dates: start: 20061020, end: 20061202

REACTIONS (3)
  - HEADACHE [None]
  - MEDICATION ERROR [None]
  - PYREXIA [None]
